FAERS Safety Report 4424711-7 (Version None)
Quarter: 2004Q3

REPORT INFORMATION
  Report Type: 
  Country: None (occurrence: None)
  Receive Date: 20040719
  Receipt Date: 20030721
  Transmission Date: 20050211
  Serious: Yes (Hospitalization)
  Sender: FDA-Public Use
  Company Number: 176084

PATIENT
  Age: 57 Year
  Sex: Female
  Weight: 90.7194 kg

DRUGS (3)
  1. AVONEX [Suspect]
     Indication: MULTIPLE SCLEROSIS
     Dosage: 30 MCG QW IM
     Route: 030
     Dates: start: 20000101, end: 20030601
  2. SYNTHROID [Concomitant]
  3. HIGH BLOOD PRESSURE MEDICATION (NOS) [Concomitant]

REACTIONS (5)
  - ARTHRITIS [None]
  - BALANCE DISORDER [None]
  - FALL [None]
  - FOOT FRACTURE [None]
  - MULTIPLE SCLEROSIS [None]
